FAERS Safety Report 15708892 (Version 4)
Quarter: 2019Q1

REPORT INFORMATION
  Report Type: Spontaneous
  Country: BE (occurrence: BE)
  Receive Date: 20181211
  Receipt Date: 20190327
  Transmission Date: 20190417
  Serious: Yes (Other)
  Sender: FDA-Public Use
  Company Number: BE-ABBVIE-18K-013-2585760-00

PATIENT
  Sex: Male

DRUGS (6)
  1. CARVEDILOL. [Concomitant]
     Active Substance: CARVEDILOL
  2. OMEPRAZOL [Concomitant]
     Active Substance: OMEPRAZOLE
  3. CARVEDILOL. [Concomitant]
     Active Substance: CARVEDILOL
     Indication: HEART RATE IRREGULAR
  4. HUMIRA [Suspect]
     Active Substance: ADALIMUMAB
     Indication: CROHN^S DISEASE
     Route: 058
     Dates: start: 20181124, end: 20181211
  5. OMEPRAZOL [Concomitant]
     Active Substance: OMEPRAZOLE
     Dates: start: 20181217
  6. OMEPRAZOL [Concomitant]
     Active Substance: OMEPRAZOLE
     Indication: PRODUCT USED FOR UNKNOWN INDICATION
     Dates: start: 2008, end: 20181217

REACTIONS (9)
  - Immunodeficiency [Unknown]
  - Suffocation feeling [Not Recovered/Not Resolved]
  - Nasopharyngitis [Unknown]
  - Fungal pharyngitis [Unknown]
  - Sputum retention [Unknown]
  - Dyspnoea [Recovering/Resolving]
  - Heart rate irregular [Recovering/Resolving]
  - Tongue fungal infection [Unknown]
  - Dyspepsia [Unknown]

NARRATIVE: CASE EVENT DATE: 2018
